FAERS Safety Report 24324013 (Version 2)
Quarter: 2024Q4

REPORT INFORMATION
  Report Type: Report from Study
  Country: CA (occurrence: CA)
  Receive Date: 20240916
  Receipt Date: 20241024
  Transmission Date: 20250115
  Serious: No
  Sender: MYLAN
  Company Number: CA-MYLANLABS-2024M1081920

PATIENT
  Sex: Female

DRUGS (2)
  1. EPIPEN [Suspect]
     Active Substance: EPINEPHRINE
     Indication: Hypersensitivity
     Dosage: UNK
     Route: 065
     Dates: start: 20240830
  2. EPIPEN [Suspect]
     Active Substance: EPINEPHRINE
     Indication: Rash erythematous
     Dosage: UNK
     Route: 065
     Dates: start: 20240830

REACTIONS (3)
  - Device failure [Unknown]
  - Product colour issue [Unknown]
  - Incorrect dose administered by device [Unknown]

NARRATIVE: CASE EVENT DATE: 20240830
